FAERS Safety Report 24987825 (Version 1)
Quarter: 2025Q1

REPORT INFORMATION
  Report Type: Report from Study
  Country: CA (occurrence: CA)
  Receive Date: 20250219
  Receipt Date: 20250219
  Transmission Date: 20250409
  Serious: Yes (Death, Other)
  Sender: ABBVIE
  Company Number: CA-JNJFOC-20241147728

PATIENT
  Age: 67 Year
  Sex: Female

DRUGS (1)
  1. IMBRUVICA [Suspect]
     Active Substance: IBRUTINIB
     Indication: Marginal zone lymphoma
     Route: 048
     Dates: start: 20241009

REACTIONS (4)
  - Death [Fatal]
  - Hot flush [Unknown]
  - Nausea [Unknown]
  - Arthritis infective [Not Recovered/Not Resolved]
